FAERS Safety Report 7973726-0 (Version None)
Quarter: 2011Q4

REPORT INFORMATION
  Report Type: 
  Country: None (occurrence: None)
  Receive Date: 20111213
  Receipt Date: 20111213
  Transmission Date: 20120403
  Serious: No
  Sender: FDA-Public Use
  Company Number: None

PATIENT
  Sex: Female
  Weight: 644.1 kg

DRUGS (17)
  1. ASPIRIN [Concomitant]
  2. LORAZEPAM [Concomitant]
  3. GLIMEPIRIDE [Concomitant]
  4. SYNTHROID [Concomitant]
  5. FUROSEMIDE [Concomitant]
  6. PERCOCET [Concomitant]
  7. TENORMIN [Concomitant]
  8. PROLIA [Suspect]
     Indication: OSTEOPOROSIS
     Dosage: 60 MG
     Route: 058
     Dates: start: 20110608, end: 20110608
  9. NOVOLIN 70/30 [Concomitant]
  10. VASOTEC [Concomitant]
  11. NIFEDIPINE [Concomitant]
  12. JANUVIA [Concomitant]
  13. FLUNISOLIDE [Concomitant]
  14. PRAVASTATIN [Concomitant]
  15. DOXAZOSIN MESYLATE [Concomitant]
  16. PRILOSEC [Concomitant]
  17. VITAMIN D [Concomitant]

REACTIONS (2)
  - FEMUR FRACTURE [None]
  - IMPAIRED HEALING [None]
